FAERS Safety Report 4522034-9 (Version None)
Quarter: 2004Q4

REPORT INFORMATION
  Report Type: 
  Country: None (occurrence: None)
  Receive Date: 20041206
  Receipt Date: 20041119
  Transmission Date: 20050328
  Serious: Yes (Hospitalization)
  Sender: FDA-Public Use
  Company Number: 207015

PATIENT
  Age: 52 Year
  Sex: Female

DRUGS (3)
  1. AVONEX [Suspect]
     Indication: MULTIPLE SCLEROSIS
     Dosage: 30 UG; QW; IM
     Route: 030
     Dates: start: 19981201
  2. PAXIL [Concomitant]
  3. PROTONIX [Concomitant]

REACTIONS (6)
  - CONDITION AGGRAVATED [None]
  - DEAFNESS [None]
  - DIZZINESS [None]
  - INNER EAR DISORDER [None]
  - MULTIPLE SCLEROSIS [None]
  - VOMITING [None]
